FAERS Safety Report 7601491-5 (Version None)
Quarter: 2011Q2

REPORT INFORMATION
  Report Type: 
  Country: None (occurrence: None)
  Receive Date: 20110629
  Receipt Date: 20110320
  Transmission Date: 20111010
  Serious: Yes (Other)
  Sender: FDA-Public Use
  Company Number: 2011SA005465

PATIENT
  Age: 75 Year
  Sex: Female

DRUGS (7)
  1. LANTUS [Suspect]
     Indication: TYPE 2 DIABETES MELLITUS
     Dosage: 34 UNIT(S), DAILY, SUBCUTANEOUS; 44 UNIT(S), DAILY, SUBCUTANEOUS;
     Route: 058
     Dates: start: 20100101, end: 20110101
  2. LANTUS [Suspect]
     Indication: TYPE 2 DIABETES MELLITUS
     Dosage: 34 UNIT(S), DAILY, SUBCUTANEOUS; 44 UNIT(S), DAILY, SUBCUTANEOUS;
     Route: 058
     Dates: start: 20110120
  3. OPTICLICK [Suspect]
     Indication: TYPE 2 DIABETES MELLITUS
     Dates: end: 20110101
  4. GLIPIZIDE [Concomitant]
  5. METFORMIN HCL [Concomitant]
  6. SOLOSTAR [Suspect]
     Indication: TYPE 2 DIABETES MELLITUS
     Dates: start: 20110101
  7. LANTUS [Suspect]
     Dosage: 72 UNIT(S), DAILY, SUBCUTANEOUS
     Route: 058
     Dates: start: 20110101

REACTIONS (7)
  - BLOOD GLUCOSE DECREASED [None]
  - UPPER LIMB FRACTURE [None]
  - FALL [None]
  - DRUG INTERACTION [None]
  - WRONG TECHNIQUE IN DRUG USAGE PROCESS [None]
  - BLOOD GLUCOSE INCREASED [None]
  - PRODUCT QUALITY ISSUE [None]
